FAERS Safety Report 14704813 (Version 4)
Quarter: 2018Q2

REPORT INFORMATION
  Report Type: Spontaneous
  Country: JP (occurrence: JP)
  Receive Date: 20180402
  Receipt Date: 20180524
  Transmission Date: 20180711
  Serious: No
  Sender: FDA-Public Use
  Company Number: JP-PFIZER INC-2018134763

PATIENT
  Age: 13 Year
  Sex: Female

DRUGS (2)
  1. OCTREOTIDE. [Concomitant]
     Active Substance: OCTREOTIDE
     Indication: LYMPHANGIOMA
     Dosage: UNK
  2. RAPALIMUS [Suspect]
     Active Substance: SIROLIMUS
     Indication: LYMPHANGIOMA
     Dosage: UNK

REACTIONS (1)
  - Product use in unapproved indication [Unknown]
